FAERS Safety Report 7994357-2 (Version None)
Quarter: 2011Q4

REPORT INFORMATION
  Report Type: 
  Country: None (occurrence: None)
  Receive Date: 20111220
  Receipt Date: 20110816
  Transmission Date: 20120403
  Serious: No
  Sender: FDA-Public Use
  Company Number: US-GLAXOSMITHKLINE-A0941360A

PATIENT
  Age: 70 Year
  Sex: Female

DRUGS (1)
  1. SORIATANE [Suspect]
     Dosage: 10MG ALTERNATE DAYS
     Route: 048

REACTIONS (1)
  - AMNESIA [None]
